FAERS Safety Report 8429575-2 (Version None)
Quarter: 2012Q2

REPORT INFORMATION
  Report Type: 
  Country: None (occurrence: None)
  Receive Date: 20120612
  Receipt Date: 20120608
  Transmission Date: 20120825
  Serious: Yes (Other)
  Sender: FDA-Public Use
  Company Number: US-PFIZER INC-2010034367

PATIENT
  Sex: Male
  Weight: 118 kg

DRUGS (4)
  1. DILANTIN KAPSEAL [Suspect]
     Dosage: 300 MG, 1X/DAY (100 MG CAPSULES THREE CAPSULES EVERY DAY AT BEDTIME)
     Route: 048
     Dates: start: 20090216
  2. DILANTIN KAPSEAL [Suspect]
     Indication: CONVULSION
     Dosage: 100 MG, UNK
     Route: 048
     Dates: start: 20081126
  3. DILANTIN KAPSEAL [Suspect]
     Dosage: 300 MG, 1X/DAY (AT NIGHT)
     Route: 048
  4. DILANTIN KAPSEAL [Suspect]
     Dosage: 400 MG, 2X/DAY (400 MG IN THE MORNING AND IN THE EVENING)
     Route: 048
     Dates: start: 20090512, end: 20090501

REACTIONS (1)
  - STEVENS-JOHNSON SYNDROME [None]
